FAERS Safety Report 16878007 (Version 2)
Quarter: 2019Q4

REPORT INFORMATION
  Report Type: Spontaneous
  Country: US (occurrence: US)
  Receive Date: 20191002
  Receipt Date: 20191127
  Transmission Date: 20200122
  Serious: No
  Sender: FDA-Public Use
  Company Number: US-BAYER-2019-178590

PATIENT
  Age: 52 Year
  Sex: Female
  Weight: 79 kg

DRUGS (1)
  1. MIRALAX [Suspect]
     Active Substance: POLYETHYLENE GLYCOL 3350
     Indication: BOWEL MOVEMENT IRREGULARITY
     Dosage: 1 DF, 4IW
     Route: 048
     Dates: start: 2014

REACTIONS (4)
  - Abdominal pain upper [Unknown]
  - Product odour abnormal [None]
  - Inappropriate schedule of product administration [Unknown]
  - Product solubility abnormal [None]

NARRATIVE: CASE EVENT DATE: 2014
